FAERS Safety Report 21907671 (Version 7)
Quarter: 2023Q2

REPORT INFORMATION
  Report Type: Report from Study
  Country: ZA (occurrence: ZA)
  Receive Date: 20230125
  Receipt Date: 20230606
  Transmission Date: 20230721
  Serious: Yes (Hospitalization, Other)
  Sender: FDA-Public Use
  Company Number: ZA-002147023-NVSC2022ZA160595

PATIENT
  Age: 33 Year
  Sex: Male

DRUGS (2)
  1. SECUKINUMAB [Suspect]
     Active Substance: SECUKINUMAB
     Indication: Ankylosing spondylitis
     Dosage: 150 MG, QMO
     Route: 058
     Dates: start: 20220712, end: 20230314
  2. VORICONAZOLE [Concomitant]
     Active Substance: VORICONAZOLE
     Indication: Product used for unknown indication
     Dosage: UNK (02 MONTHS)
     Route: 048
     Dates: start: 202303

REACTIONS (16)
  - Bronchopulmonary aspergillosis [Recovering/Resolving]
  - Fatigue [Unknown]
  - Dyspnoea [Unknown]
  - Pleural effusion [Unknown]
  - Chest discomfort [Not Recovered/Not Resolved]
  - Cough [Unknown]
  - Dyspnoea exertional [Not Recovered/Not Resolved]
  - Seizure [Unknown]
  - Lung abscess [Unknown]
  - Sinus congestion [Unknown]
  - Headache [Unknown]
  - Rhinorrhoea [Unknown]
  - Bronchitis [Unknown]
  - Pain [Unknown]
  - Cystic lung disease [Unknown]
  - Lung infiltration [Unknown]

NARRATIVE: CASE EVENT DATE: 20220714
